FAERS Safety Report 11632444 (Version 6)
Quarter: 2016Q1

REPORT INFORMATION
  Report Type: Spontaneous
  Country: DE (occurrence: DE)
  Receive Date: 20151015
  Receipt Date: 20160314
  Transmission Date: 20160525
  Serious: Yes (Death, Hospitalization, Other)
  Sender: FDA-Public Use
  Company Number: DE-JNJFOC-20151010530

PATIENT
  Age: 64 Year
  Sex: Male
  Weight: 92 kg

DRUGS (8)
  1. RIFAXIMIN [Concomitant]
     Active Substance: RIFAXIMIN
     Route: 065
  2. XARELTO [Suspect]
     Active Substance: RIVAROXABAN
     Indication: ATRIAL FIBRILLATION
     Route: 048
     Dates: start: 20150217, end: 20150813
  3. METOPROLOL SUCCINATE. [Concomitant]
     Active Substance: METOPROLOL SUCCINATE
     Indication: HYPERTENSION
     Route: 065
  4. LACTULOSE. [Concomitant]
     Active Substance: LACTULOSE
     Route: 065
  5. XARELTO [Suspect]
     Active Substance: RIVAROXABAN
     Indication: CEREBROVASCULAR ACCIDENT PROPHYLAXIS
     Route: 048
     Dates: start: 20150217, end: 20150813
  6. RAMIPRIL. [Concomitant]
     Active Substance: RAMIPRIL
     Route: 065
  7. METOPROLOL SUCCINATE. [Concomitant]
     Active Substance: METOPROLOL SUCCINATE
     Route: 065
  8. PHYTOMENADION [Concomitant]
     Dosage: 1 VIAL
     Route: 065

REACTIONS (6)
  - Hepatic enzyme increased [Unknown]
  - Toxicity to various agents [Fatal]
  - Autoimmune hepatitis [Recovered/Resolved]
  - Hepatic cirrhosis [Fatal]
  - Hepatic failure [Fatal]
  - General physical health deterioration [Unknown]

NARRATIVE: CASE EVENT DATE: 2015
